FAERS Safety Report 6015164-6 (Version None)
Quarter: 2008Q4

REPORT INFORMATION
  Report Type: 
  Country: None (occurrence: None)
  Receive Date: 20081219
  Receipt Date: 20081219
  Transmission Date: 20090506
  Serious: Yes (Disabling)
  Sender: FDA-Public Use
  Company Number: None

PATIENT
  Sex: Male
  Weight: 102.0593 kg

DRUGS (3)
  1. LEVAQUIN [Suspect]
     Indication: POST PROCEDURAL INFECTION
     Dosage: ONE TABLET BY MOUTH ONCE A DAY ORAL
     Route: 048
     Dates: start: 20070829, end: 20070907
  2. LEVAQUIN [Suspect]
     Indication: POST PROCEDURAL INFECTION
     Dosage: ONE TABLET BY MOUTH ONCE A DAY ORAL
     Route: 048
     Dates: start: 20080103, end: 20080113
  3. LEVAQUIN [Suspect]
     Indication: POST PROCEDURAL INFECTION
     Dosage: ONE TABLET BY MOUTH ONCE A DAY ORAL
     Route: 048
     Dates: start: 20080128, end: 20080214

REACTIONS (1)
  - TENDON RUPTURE [None]
